FAERS Safety Report 22108156 (Version 1)
Quarter: 2023Q1

REPORT INFORMATION
  Report Type: Spontaneous
  Country: JP (occurrence: JP)
  Receive Date: 20230317
  Receipt Date: 20230317
  Transmission Date: 20230418
  Serious: Yes (Other)
  Sender: FDA-Public Use
  Company Number: JP-NAPPMUNDI-GBR-2023-0105677

PATIENT
  Age: 64 Year
  Sex: Female

DRUGS (1)
  1. PRALATREXATE [Suspect]
     Active Substance: PRALATREXATE
     Indication: Peripheral T-cell lymphoma unspecified
     Dosage: UNK
     Route: 042

REACTIONS (1)
  - Malignant neoplasm progression [Recovering/Resolving]
